FAERS Safety Report 12544982 (Version 1)
Quarter: 2016Q3

REPORT INFORMATION
  Report Type: Spontaneous
  Country: IT (occurrence: IT)
  Receive Date: 20160711
  Receipt Date: 20160711
  Transmission Date: 20161109
  Serious: Yes (Other)
  Sender: FDA-Public Use
  Company Number: IT-JNJFOC-20160627268

PATIENT
  Age: 92 Year
  Sex: Female
  Weight: 54 kg

DRUGS (1)
  1. DUROGESIC [Suspect]
     Active Substance: FENTANYL
     Indication: OSTEOARTHRITIS
     Route: 062
     Dates: start: 20160624, end: 20160626

REACTIONS (2)
  - Hypokinesia [Recovered/Resolved]
  - Aphasia [Recovered/Resolved]

NARRATIVE: CASE EVENT DATE: 20160626
